FAERS Safety Report 24605603 (Version 2)
Quarter: 2024Q4

REPORT INFORMATION
  Report Type: Spontaneous
  Country: US (occurrence: US)
  Receive Date: 20241111
  Receipt Date: 20241204
  Transmission Date: 20250114
  Serious: No
  Sender: LUNDBECK
  Company Number: US-LUNDBECK-DKLU4006273

PATIENT

DRUGS (4)
  1. VYEPTI [Interacting]
     Active Substance: EPTINEZUMAB-JJMR
     Indication: Migraine
     Dosage: 300 MILLIGRAM, Q12WEEKS, STARTED 2.5 YEARS AGO
     Route: 041
  2. ENTYVIO [Interacting]
     Active Substance: VEDOLIZUMAB
     Indication: Crohn^s disease
  3. RIZATRIPTAN [Concomitant]
     Active Substance: RIZATRIPTAN
     Indication: Product used for unknown indication
  4. PREDNISONE [Concomitant]
     Active Substance: PREDNISONE
     Indication: Product used for unknown indication

REACTIONS (2)
  - Drug ineffective [Unknown]
  - Drug interaction [Unknown]
